FAERS Safety Report 6311452-4 (Version None)
Quarter: 2009Q3

REPORT INFORMATION
  Report Type: 
  Country: None (occurrence: None)
  Receive Date: 20090810
  Receipt Date: 20090731
  Transmission Date: 20100115
  Serious: Yes (Life-Threatening)
  Sender: FDA-Public Use
  Company Number: 2009020549

PATIENT
  Age: 87 Year
  Sex: Female

DRUGS (3)
  1. ALBUMINAR-25 [Suspect]
     Indication: HYPOALBUMINAEMIA
     Dosage: 50 ML, 12.5 G DAILY INTRAVENOUS
     Route: 042
     Dates: start: 20090718, end: 20090720
  2. MEROPEN /01250501/ (MEROPENEM) [Concomitant]
  3. FUTHAN (NAFAMOSTAT MESILATE) [Concomitant]

REACTIONS (4)
  - ALANINE AMINOTRANSFERASE INCREASED [None]
  - ASPARTATE AMINOTRANSFERASE INCREASED [None]
  - BLOOD BILIRUBIN INCREASED [None]
  - HEPATIC FUNCTION ABNORMAL [None]
